FAERS Safety Report 10253877 (Version 1)
Quarter: 2014Q2

REPORT INFORMATION
  Report Type: Spontaneous
  Country: GB (occurrence: GB)
  Receive Date: 20140623
  Receipt Date: 20140623
  Transmission Date: 20141212
  Serious: Yes (Death, Hospitalization)
  Sender: FDA-Public Use
  Company Number: GB-PFIZER INC-2014168597

PATIENT
  Age: 69 Year
  Sex: Male

DRUGS (2)
  1. SUTENT [Suspect]
     Dosage: 50 MG, CYCLIC
     Dates: start: 201205
  2. WARFARIN [Concomitant]
     Dosage: UNK

REACTIONS (4)
  - Hepatic failure [Fatal]
  - Renal failure [Unknown]
  - Blood lactic acid increased [Unknown]
  - Cardiomyopathy [Unknown]
